FAERS Safety Report 18549284 (Version 3)
Quarter: 2020Q4

REPORT INFORMATION
  Report Type: Spontaneous
  Country: US (occurrence: US)
  Receive Date: 20201126
  Receipt Date: 20201217
  Transmission Date: 20210114
  Serious: No
  Sender: FDA-Public Use
  Company Number: US-AMGEN-USASP2020189424

PATIENT
  Age: 56 Year
  Sex: Female

DRUGS (1)
  1. PROLIA [Suspect]
     Active Substance: DENOSUMAB
     Indication: PRODUCT USED FOR UNKNOWN INDICATION
     Dosage: UNK
     Route: 065
     Dates: start: 202005

REACTIONS (6)
  - Injection site vesicles [Unknown]
  - Injection site atrophy [Not Recovered/Not Resolved]
  - Injection site erythema [Not Recovered/Not Resolved]
  - Product administered at inappropriate site [Unknown]
  - Injection site discolouration [Not Recovered/Not Resolved]
  - Injection site indentation [Unknown]

NARRATIVE: CASE EVENT DATE: 202005
